FAERS Safety Report 19826812 (Version 1)
Quarter: 2021Q3

REPORT INFORMATION
  Report Type: Report from Study
  Country: None (occurrence: US)
  Receive Date: 20210913
  Receipt Date: 20210913
  Transmission Date: 20211014
  Serious: Yes (Other)
  Sender: FDA-Public Use
  Company Number: US-ABBVIE-21K-163-4024567-00

PATIENT
  Age: 63 Year
  Sex: Male

DRUGS (1)
  1. RINVOQ [Suspect]
     Active Substance: UPADACITINIB
     Indication: RHEUMATOID ARTHRITIS
     Route: 048
     Dates: end: 20210803

REACTIONS (6)
  - Bone disorder [Unknown]
  - Diabetes mellitus [Unknown]
  - Musculoskeletal disorder [Unknown]
  - Foot fracture [Not Recovered/Not Resolved]
  - Gait disturbance [Unknown]
  - Skin ulcer [Unknown]

NARRATIVE: CASE EVENT DATE: 202107
